FAERS Safety Report 7057408-8 (Version None)
Quarter: 2010Q4

REPORT INFORMATION
  Report Type: 
  Country: None (occurrence: None)
  Receive Date: 20101022
  Receipt Date: 20101013
  Transmission Date: 20110411
  Serious: Yes (Death)
  Sender: FDA-Public Use
  Company Number: GB-BRACCO-000306

PATIENT
  Sex: Male

DRUGS (1)
  1. NIOPAM [Suspect]
     Indication: COMPUTERISED TOMOGRAM
     Dosage: DRUG ADMINISTERED AT 15:24
     Dates: start: 20101012, end: 20101012

REACTIONS (2)
  - DEPRESSED LEVEL OF CONSCIOUSNESS [None]
  - NAUSEA [None]
